FAERS Safety Report 7456585-4 (Version None)
Quarter: 2011Q2

REPORT INFORMATION
  Report Type: 
  Country: None (occurrence: None)
  Receive Date: 20110503
  Receipt Date: 20110428
  Transmission Date: 20111010
  Serious: Yes (Death, Other)
  Sender: FDA-Public Use
  Company Number: FR-PFIZER INC-2011091298

PATIENT
  Age: 72 Year
  Sex: Female

DRUGS (16)
  1. XANAX [Suspect]
     Indication: ANXIETY
     Dosage: 0.5 MG, 1X/DAY
     Route: 048
     Dates: end: 20110301
  2. TOPALGIC [Suspect]
     Indication: ARTHRALGIA
     Dosage: 300 MG, UNK
     Route: 042
     Dates: start: 20110222, end: 20110223
  3. DAFALGAN [Suspect]
     Indication: ARTHRALGIA
     Dosage: 3G PER DAY
     Route: 048
     Dates: start: 20110224, end: 20110301
  4. XYZAL [Suspect]
     Dosage: UNK
     Route: 048
     Dates: end: 20110301
  5. ART 50 [Suspect]
     Indication: OSTEOARTHRITIS
     Dosage: 100MG PER DAY
     Route: 048
     Dates: end: 20110301
  6. NISISCO [Suspect]
     Indication: HYPERTENSION
     Dosage: 165/25MG ; 1 PER DAY
     Route: 048
     Dates: end: 20110301
  7. LOVENOX [Suspect]
     Indication: THROMBOSIS PROPHYLAXIS
     Dosage: 1 POST-OPERATION INJECTION
     Route: 058
     Dates: start: 20110222, end: 20110222
  8. TOPALGIC [Suspect]
     Dosage: 150 MG, UNK
     Route: 048
     Dates: start: 20110225, end: 20110301
  9. PRADAXA [Suspect]
     Indication: THROMBOSIS PROPHYLAXIS
     Dosage: 110 MG, 2X/DAY
     Route: 048
     Dates: start: 20110223, end: 20110228
  10. PERFALGAN [Suspect]
     Indication: ARTHRALGIA
     Dosage: 1 G, 4X/DAY
     Route: 042
     Dates: start: 20110222, end: 20110223
  11. EUPRESSYL [Suspect]
     Indication: HYPERTENSION
     Dosage: 60 MG, UNK
     Route: 048
     Dates: end: 20110301
  12. TARDYFERON B9 [Suspect]
     Indication: ANAEMIA
     Dosage: UNK
     Route: 048
     Dates: start: 20110223, end: 20110301
  13. HYDERGINE [Suspect]
     Dosage: UNK
     Route: 048
     Dates: end: 20110301
  14. FUROSEMIDE [Suspect]
     Indication: HYPERTENSION
     Dosage: UNK
     Route: 048
     Dates: end: 20110301
  15. CELIPROLOL [Suspect]
     Indication: HYPERTENSION
     Dosage: 200 MG/DAY
     Route: 048
     Dates: end: 20110301
  16. INIPOMP [Suspect]
     Dosage: UNK
     Route: 048
     Dates: end: 20110301

REACTIONS (6)
  - CARDIO-RESPIRATORY ARREST [None]
  - PAIN [None]
  - DYSPNOEA [None]
  - VENOUS INSUFFICIENCY [None]
  - KNEE ARTHROPLASTY [None]
  - AORTIC BRUIT [None]
